FAERS Safety Report 24081783 (Version 1)
Quarter: 2024Q3

REPORT INFORMATION
  Report Type: Spontaneous
  Country: BE (occurrence: BE)
  Receive Date: 20240712
  Receipt Date: 20240712
  Transmission Date: 20241017
  Serious: Yes (Disabling)
  Sender: ROCHE
  Company Number: None

PATIENT
  Sex: Female
  Weight: 68 kg

DRUGS (2)
  1. TOCILIZUMAB [Suspect]
     Active Substance: TOCILIZUMAB
     Indication: Polymyalgia rheumatica
     Dosage: SUBCUTANEOUSLY ONCE A WEEK?ACCORDING TO THE RHEUMATOLOGIST I SHOULD TAKE THIS FOR 1 YEAR AND THEN TA
     Route: 058
     Dates: start: 20240118
  2. PREDNISOLONE [Concomitant]
     Active Substance: PREDNISOLONE
     Dosage: FROM 30/11/2023 TO 30/6/24 PREDNISOLONE TAPERED OFF FROM 60 MG TO 0 MG.
     Route: 065

REACTIONS (9)
  - Arthralgia [Not Recovered/Not Resolved]
  - Dizziness [Not Recovered/Not Resolved]
  - Hyperaesthesia teeth [Not Recovered/Not Resolved]
  - Hypersensitivity [Not Recovered/Not Resolved]
  - Nausea [Not Recovered/Not Resolved]
  - Diarrhoea [Not Recovered/Not Resolved]
  - Dyspepsia [Not Recovered/Not Resolved]
  - Fatigue [Not Recovered/Not Resolved]
  - Malaise [Not Recovered/Not Resolved]

NARRATIVE: CASE EVENT DATE: 20240201
